FAERS Safety Report 9409599 (Version 5)
Quarter: 2014Q4

REPORT INFORMATION
  Report Type: Spontaneous
  Country: US (occurrence: US)
  Receive Date: 20130424
  Receipt Date: 20141128
  Transmission Date: 20150529
  Serious: Yes (Other)
  Sender: FDA-Public Use
  Company Number: JPI-P-031041

PATIENT
  Age: 59 Year
  Sex: Female

DRUGS (6)
  1. FLUTICASONE PROPIONATE (FLUTICASONE PROPIONATE) (FLUTICASONE PROPIONATE) [Concomitant]
     Active Substance: FLUTICASONE PROPIONATE
  2. FLUOXETINE HYDROCHLORIDE. [Concomitant]
     Active Substance: FLUOXETINE HYDROCHLORIDE
  3. HYDROCODONE BITARTRATE AND ACETAMINOPHEN [Concomitant]
     Active Substance: ACETAMINOPHEN\HYDROCODONE BITARTRATE
  4. XYREM [Suspect]
     Active Substance: SODIUM OXYBATE
     Indication: NARCOLEPSY
     Route: 048
     Dates: start: 20080125, end: 2008
  5. XYREM [Suspect]
     Active Substance: SODIUM OXYBATE
     Indication: CATAPLEXY
     Route: 048
     Dates: start: 20080125, end: 2008
  6. CETIRIZINE [Concomitant]
     Active Substance: CETIRIZINE HYDROCHLORIDE

REACTIONS (21)
  - Contusion [None]
  - Balance disorder [None]
  - Lip injury [None]
  - Dysuria [None]
  - Concussion [None]
  - Sudden onset of sleep [None]
  - Head injury [None]
  - Cystitis [None]
  - Blood urine present [None]
  - Faecaloma [None]
  - Micturition urgency [None]
  - Joint injury [None]
  - Face injury [None]
  - Automatic bladder [None]
  - Pain [None]
  - Fall [None]
  - Nausea [None]
  - Headache [None]
  - Gastrointestinal pain [None]
  - Tooth fracture [None]
  - Anxiety [None]

NARRATIVE: CASE EVENT DATE: 201301
